FAERS Safety Report 7554252-X (Version None)
Quarter: 2011Q2

REPORT INFORMATION
  Report Type: 
  Country: None (occurrence: None)
  Receive Date: 20110617
  Receipt Date: 20110606
  Transmission Date: 20111010
  Serious: Yes (Hospitalization, Other)
  Sender: FDA-Public Use
  Company Number: US-PFIZER INC-2011128666

PATIENT
  Age: 13 Year
  Sex: Male

DRUGS (4)
  1. VECURONIUM BROMIDE [Suspect]
     Dosage: UNK
  2. ONDANSETRON [Suspect]
     Dosage: UNK
  3. DESFLURANE [Suspect]
     Dosage: UNK
  4. SEVOFLURANE [Suspect]
     Dosage: UNK

REACTIONS (3)
  - DRUG INTERACTION [None]
  - VENTRICULAR TACHYCARDIA [None]
  - EXTRASYSTOLES [None]
